FAERS Safety Report 6307959-6 (Version None)
Quarter: 2009Q3

REPORT INFORMATION
  Report Type: 
  Country: None (occurrence: None)
  Receive Date: 20090813
  Receipt Date: 20090805
  Transmission Date: 20100115
  Serious: Yes (Hospitalization)
  Sender: FDA-Public Use
  Company Number: GB-ROCHE-648492

PATIENT
  Sex: Male
  Weight: 73 kg

DRUGS (5)
  1. CAPECITABINE [Suspect]
     Route: 048
     Dates: start: 20090630
  2. BEVACIZUMAB [Suspect]
     Route: 042
     Dates: start: 20090630
  3. CISPLATIN [Suspect]
     Route: 042
     Dates: start: 20090630
  4. EPIRUBICIN [Suspect]
     Route: 042
     Dates: start: 20090630
  5. LANSOPRAZOLE [Concomitant]
     Route: 048
     Dates: start: 20090630

REACTIONS (1)
  - ACUTE PRERENAL FAILURE [None]
